FAERS Safety Report 8399613-4 (Version None)
Quarter: 2012Q2

REPORT INFORMATION
  Report Type: 
  Country: None (occurrence: None)
  Receive Date: 20120531
  Receipt Date: 20120524
  Transmission Date: 20120825
  Serious: Yes (Death)
  Sender: FDA-Public Use
  Company Number: CA-UCBSA-058147

PATIENT
  Age: 72 Year
  Sex: Male

DRUGS (1)
  1. CIMZIA [Suspect]
     Route: 058
     Dates: start: 20120502, end: 20120522

REACTIONS (1)
  - DEATH [None]
